FAERS Safety Report 5578562-0 (Version None)
Quarter: 2007Q4

REPORT INFORMATION
  Report Type: 
  Country: None (occurrence: None)
  Receive Date: 20071227
  Receipt Date: 20071211
  Transmission Date: 20080405
  Serious: Yes (Hospitalization)
  Sender: FDA-Public Use
  Company Number: 430006M07FRA

PATIENT
  Age: 76 Year
  Sex: Male

DRUGS (2)
  1. NOVANTRONE [Suspect]
     Indication: METASTASES TO BONE
     Dosage: 20 MG, 1 CYCLE, INTRAVENOUS
     Route: 042
     Dates: start: 20071101
  2. NOVANTRONE [Suspect]
     Indication: PROSTATE CANCER
     Dosage: 20 MG, 1 CYCLE, INTRAVENOUS
     Route: 042
     Dates: start: 20071101

REACTIONS (4)
  - CARDIAC FAILURE [None]
  - DIASTOLIC DYSFUNCTION [None]
  - LEFT VENTRICULAR FAILURE [None]
  - PLEURAL EFFUSION [None]
